FAERS Safety Report 10193939 (Version 1)
Quarter: 2014Q2

REPORT INFORMATION
  Report Type: Spontaneous
  Country: US (occurrence: US)
  Receive Date: 20140524
  Receipt Date: 20140524
  Transmission Date: 20141212
  Serious: No
  Sender: FDA-Public Use
  Company Number: US-SANOFI-AVENTIS-2013SA072998

PATIENT
  Sex: Female

DRUGS (9)
  1. LANTUS SOLOSTAR [Suspect]
     Indication: PRODUCT USED FOR UNKNOWN INDICATION
     Dosage: DOSE:20 UNIT(S)
     Route: 058
  2. PRAVASTATIN [Suspect]
     Indication: PRODUCT USED FOR UNKNOWN INDICATION
     Route: 065
  3. SOLOSTAR [Concomitant]
  4. GLIPIZIDE [Concomitant]
  5. ANTIHYPERTENSIVES [Concomitant]
  6. JANUVIA [Concomitant]
  7. QUINAPRIL [Concomitant]
     Indication: BLOOD PRESSURE
  8. CRESTOR [Concomitant]
  9. FENOFIBRATE [Concomitant]

REACTIONS (14)
  - Pain in extremity [Unknown]
  - Erythema [Unknown]
  - Hyperkeratosis [Unknown]
  - Pain [Unknown]
  - Oral pain [Unknown]
  - Headache [Unknown]
  - Somnolence [Unknown]
  - Heart rate increased [Unknown]
  - Blood glucose abnormal [Unknown]
  - Hypoglycaemia [Unknown]
  - Vitreous floaters [Unknown]
  - Blood glucose increased [Unknown]
  - Blood glucose decreased [Unknown]
  - Drug dose omission [Unknown]
